FAERS Safety Report 7501663-4 (Version None)
Quarter: 2011Q2

REPORT INFORMATION
  Report Type: 
  Country: None (occurrence: None)
  Receive Date: 20110525
  Receipt Date: 20110513
  Transmission Date: 20111010
  Serious: Yes (Other)
  Sender: FDA-Public Use
  Company Number: PT-BAYER-2011-041469

PATIENT
  Age: 68 Year
  Sex: Female
  Weight: 92 kg

DRUGS (1)
  1. AVELOX [Suspect]
     Indication: RHINITIS
     Dosage: 400 MG, QD
     Route: 048
     Dates: start: 20110312, end: 20110318

REACTIONS (4)
  - ASTHENIA [None]
  - DISORIENTATION [None]
  - DIZZINESS [None]
  - URINARY RETENTION [None]
